FAERS Safety Report 14400712 (Version 13)
Quarter: 2019Q1

REPORT INFORMATION
  Report Type: Report from Study
  Country: TW (occurrence: TW)
  Receive Date: 20180117
  Receipt Date: 20190315
  Transmission Date: 20190417
  Serious: Yes (Death, Hospitalization)
  Sender: FDA-Public Use
  Company Number: TW-ACTELION-A-CH2017-150979

PATIENT
  Age: 37 Year
  Sex: Female

DRUGS (8)
  1. UPTRAVI [Interacting]
     Active Substance: SELEXIPAG
     Dosage: 400 MCG, BID
     Route: 048
     Dates: start: 20170327, end: 20170330
  2. OPSUMIT [Suspect]
     Active Substance: MACITENTAN
     Indication: PULMONARY ARTERIAL HYPERTENSION
     Dosage: 10 MG, QD
     Route: 048
     Dates: start: 20140807
  3. ADEMPAS [Suspect]
     Active Substance: RIOCIGUAT
     Indication: PULMONARY ARTERIAL HYPERTENSION
     Dosage: 2 MG, TID
     Route: 048
     Dates: start: 201608
  4. VENTAVIS [Concomitant]
     Active Substance: ILOPROST
     Indication: PULMONARY ARTERIAL HYPERTENSION
     Dosage: UNK, QD
     Route: 055
     Dates: end: 20171023
  5. UPTRAVI [Suspect]
     Active Substance: SELEXIPAG
     Indication: PULMONARY ARTERIAL HYPERTENSION
     Dosage: 200 MCG, BID
     Route: 048
     Dates: start: 20170306, end: 20170327
  6. UPTRAVI [Interacting]
     Active Substance: SELEXIPAG
     Dosage: 200 MCG, BID
     Route: 048
     Dates: start: 20170330, end: 20171019
  7. REMODULIN [Suspect]
     Active Substance: TREPROSTINIL
     Indication: PULMONARY ARTERIAL HYPERTENSION
     Dosage: UNK
     Route: 065
     Dates: start: 20171023
  8. UPTRAVI [Interacting]
     Active Substance: SELEXIPAG
     Dosage: 100 MCG, BID
     Route: 048
     Dates: start: 20171019, end: 20171023

REACTIONS (11)
  - Diarrhoea [Unknown]
  - Abdominal distension [Recovering/Resolving]
  - Abdominal pain [Unknown]
  - Post procedural infection [Unknown]
  - Death [Fatal]
  - Ascites [Recovering/Resolving]
  - Paracentesis [Unknown]
  - Dyspepsia [Unknown]
  - Abdominal cavity drainage [Unknown]
  - Abdominal discomfort [Recovering/Resolving]
  - Decreased appetite [Unknown]

NARRATIVE: CASE EVENT DATE: 20170307
